FAERS Safety Report 12187446 (Version 1)
Quarter: 2016Q1

REPORT INFORMATION
  Report Type: Spontaneous
  Country: US (occurrence: None)
  Receive Date: 20160316
  Receipt Date: 20160316
  Transmission Date: 20160526
  Serious: No
  Sender: FDA-Public Use
  Company Number: None

PATIENT
  Age: 58 Year
  Sex: Female
  Weight: 52.16 kg

DRUGS (4)
  1. MIRTAZAPINE. [Concomitant]
     Active Substance: MIRTAZAPINE
  2. ADVIL [Concomitant]
     Active Substance: IBUPROFEN
  3. LORAZEPAM. [Concomitant]
     Active Substance: LORAZEPAM
  4. ZIPRASIDONE 20MG 2 TIMES A DAY [Suspect]
     Active Substance: ZIPRASIDONE
     Indication: BIPOLAR DISORDER
     Dosage: 20MG 2 PILLS TWICE A DAY MOUTH?
     Route: 048
     Dates: start: 20150410, end: 20150412

REACTIONS (2)
  - Fatigue [None]
  - Headache [None]
